FAERS Safety Report 13557689 (Version 9)
Quarter: 2018Q1

REPORT INFORMATION
  Report Type: Spontaneous
  Country: BR (occurrence: BR)
  Receive Date: 20170518
  Receipt Date: 20180117
  Transmission Date: 20180508
  Serious: Yes (Other)
  Sender: FDA-Public Use
  Company Number: BR-PFIZER INC-2016579067

PATIENT
  Age: 49 Year
  Sex: Female
  Weight: 49 kg

DRUGS (12)
  1. XALATAN [Suspect]
     Active Substance: LATANOPROST
     Dosage: UNK
     Route: 047
     Dates: start: 20170209, end: 20170303
  2. XALATAN [Suspect]
     Active Substance: LATANOPROST
     Dosage: UNK
     Route: 047
     Dates: start: 20170304, end: 20170325
  3. XALATAN [Suspect]
     Active Substance: LATANOPROST
     Indication: INTRAOCULAR PRESSURE INCREASED
     Dosage: 2 GTT (1 GTT IN EACH EYE) ONCE DAILY AT NIGHT
     Route: 047
     Dates: start: 2011
  4. XALATAN [Suspect]
     Active Substance: LATANOPROST
     Dosage: UNK
     Route: 047
     Dates: start: 20170326, end: 20170415
  5. XALATAN [Suspect]
     Active Substance: LATANOPROST
     Dosage: ONE DROP ON BOTH EYES AT NIGHT
     Route: 047
  6. XALATAN [Suspect]
     Active Substance: LATANOPROST
     Dosage: ONE DROP ON BOTH EYES AT NIGHT
     Route: 047
  7. XALATAN [Suspect]
     Active Substance: LATANOPROST
     Dosage: UNK
     Route: 047
     Dates: start: 20161209, end: 20161227
  8. XALATAN [Suspect]
     Active Substance: LATANOPROST
     Dosage: UNK
     Route: 047
  9. COSOPT [Suspect]
     Active Substance: DORZOLAMIDE HYDROCHLORIDE\TIMOLOL MALEATE
     Dosage: 1 GTT, 2X/DAY
     Route: 047
     Dates: start: 20140603
  10. DRUSOLOL [Suspect]
     Active Substance: DORZOLAMIDE HYDROCHLORIDE\TIMOLOL MALEATE
     Indication: INTRAOCULAR PRESSURE INCREASED
     Dosage: 2 GTT (1 DROP IN BOTH EYES) TWICE DAILY
     Route: 047
     Dates: start: 201603
  11. XALATAN [Suspect]
     Active Substance: LATANOPROST
     Dosage: UNK
     Route: 047
     Dates: start: 20170416
  12. DRUSOLOL [Suspect]
     Active Substance: DORZOLAMIDE HYDROCHLORIDE\TIMOLOL MALEATE
     Dosage: UNK

REACTIONS (8)
  - Asthenopia [Unknown]
  - Eye pain [Not Recovered/Not Resolved]
  - Retinal degeneration [Unknown]
  - Eye irritation [Not Recovered/Not Resolved]
  - Exposure via skin contact [Not Recovered/Not Resolved]
  - Drug ineffective [Recovered/Resolved]
  - Product dropper issue [Not Recovered/Not Resolved]
  - Eye disorder [Not Recovered/Not Resolved]

NARRATIVE: CASE EVENT DATE: 20111108
